FAERS Safety Report 8306440-2 (Version None)
Quarter: 2012Q2

REPORT INFORMATION
  Report Type: 
  Country: None (occurrence: None)
  Receive Date: 20120423
  Receipt Date: 20120419
  Transmission Date: 20120825
  Serious: Yes (Hospitalization)
  Sender: FDA-Public Use
  Company Number: JP-BRISTOL-MYERS SQUIBB COMPANY-16214413

PATIENT
  Age: 33 Year
  Sex: Female

DRUGS (16)
  1. ORENCIA [Suspect]
     Indication: RHEUMATOID ARTHRITIS
     Dosage: LAST DOSE ON 5OCT11,NO OF INF:10 ALSO TAKEN 4,20APR,6MAY,2JUN,4JUL,3AUG,2SEP11,13DEC11,11JAN12
     Route: 041
     Dates: start: 20110404, end: 20111213
  2. METHOTREXATE [Concomitant]
     Indication: RHEUMATOID ARTHRITIS
  3. INFLIXIMAB [Concomitant]
  4. GLAKAY [Concomitant]
  5. LANSOPRAZOLE [Concomitant]
  6. MAGMITT [Concomitant]
     Indication: CONSTIPATION PROPHYLAXIS
  7. FOLIAMIN [Concomitant]
     Indication: PROPHYLAXIS
  8. ISONIAZID [Concomitant]
     Indication: TUBERCULOSIS
  9. ACTONEL [Concomitant]
  10. LOXONIN [Concomitant]
     Indication: RHEUMATOID ARTHRITIS
  11. TIZANIDINE HCL [Concomitant]
     Indication: MUSCULOSKELETAL STIFFNESS
  12. KETOPROFEN [Concomitant]
     Indication: RHEUMATOID ARTHRITIS
  13. RIMATIL [Concomitant]
     Indication: RHEUMATOID ARTHRITIS
  14. MUCOSTA [Concomitant]
     Indication: GASTRITIS PROPHYLAXIS
  15. MEDROL [Concomitant]
     Indication: RHEUMATOID ARTHRITIS
     Route: 048
  16. ADOFEED [Concomitant]
     Indication: RHEUMATOID ARTHRITIS

REACTIONS (1)
  - SUBARACHNOID HAEMORRHAGE [None]
